FAERS Safety Report 21328944 (Version 1)
Quarter: 2022Q3

REPORT INFORMATION
  Report Type: Spontaneous
  Country: US (occurrence: None)
  Receive Date: 20220912
  Receipt Date: 20220912
  Transmission Date: 20221027
  Serious: Yes (unspecified)
  Sender: FDA-Public Use
  Company Number: None

PATIENT
  Age: 44 Year
  Sex: Male
  Weight: 130.1 kg

DRUGS (2)
  1. CEFAZOLIN [Suspect]
     Active Substance: CEFAZOLIN
     Indication: Osteomyelitis
     Dosage: FREQUENCY : 3 TIMES A DAY;?
     Route: 042
     Dates: start: 20220810, end: 20220821
  2. CEFAZOLIN [Suspect]
     Active Substance: CEFAZOLIN
     Indication: Osteomyelitis
     Dosage: FREQUENCY : 3 TIMES A DAY;?
     Route: 042
     Dates: start: 20220810, end: 20220821

REACTIONS (3)
  - Drug hypersensitivity [None]
  - Arthropod bite [None]
  - Rash erythematous [None]

NARRATIVE: CASE EVENT DATE: 20220821
